FAERS Safety Report 7032655-X (Version None)
Quarter: 2010Q4

REPORT INFORMATION
  Report Type: 
  Country: None (occurrence: None)
  Receive Date: 20101007
  Receipt Date: 20100922
  Transmission Date: 20110411
  Serious: Yes (Other)
  Sender: FDA-Public Use
  Company Number: PHHY2010VE12147

PATIENT
  Sex: Female

DRUGS (1)
  1. TASIGNA [Suspect]
     Indication: CHRONIC MYELOID LEUKAEMIA
     Dosage: 200 MG, UNK
     Route: 048
     Dates: start: 20091218, end: 20100722

REACTIONS (4)
  - DRUG DOSE OMISSION [None]
  - EAR CONGESTION [None]
  - HAEMOGLOBIN DECREASED [None]
  - TACHYCARDIA [None]
